FAERS Safety Report 5438450-7 (Version None)
Quarter: 2007Q3

REPORT INFORMATION
  Report Type: 
  Country: None (occurrence: None)
  Receive Date: 20070831
  Receipt Date: 20070820
  Transmission Date: 20080115
  Serious: Yes (Other)
  Sender: FDA-Public Use
  Company Number: US-ELI_LILLY_AND_COMPANY-US200708004165

PATIENT
  Sex: Female

DRUGS (13)
  1. FORTEO [Suspect]
     Dates: start: 20070701
  2. CYMBALTA [Suspect]
     Dosage: 60 MG, DAILY (1/D)
     Dates: start: 20070101
  3. LIPITOR [Concomitant]
  4. LORAZEPAM [Concomitant]
     Dosage: 0.5 UNK, DAILY (1/D)
  5. TRAMADOL HCL [Concomitant]
  6. RANITIDINE [Concomitant]
     Dosage: 300 MG, DAILY (1/D)
  7. PROTONIX [Concomitant]
     Dosage: 40 UNK, DAILY (1/D)
  8. PROTONIX [Concomitant]
     Dosage: 40 UNK, 2/D
  9. LEVOXYL [Concomitant]
     Dosage: 150 UNK, DAILY (1/D)
  10. VITAMIN D [Concomitant]
  11. VITAMIN B COMPLEX CAP [Concomitant]
  12. STOOL SOFTENER [Concomitant]
  13. CITRUCEL [Concomitant]

REACTIONS (1)
  - MALIGNANT MELANOMA IN SITU [None]
